FAERS Safety Report 13847789 (Version 1)
Quarter: 2017Q3

REPORT INFORMATION
  Report Type: Spontaneous
  Country: US (occurrence: US)
  Receive Date: 20170809
  Receipt Date: 20170809
  Transmission Date: 20171127
  Serious: No
  Sender: FDA-Public Use
  Company Number: US-PURDUE-USA-2017-0137284

PATIENT
  Sex: Female

DRUGS (4)
  1. BUTRANS [Suspect]
     Active Substance: BUPRENORPHINE
     Indication: PAIN
     Dosage: 10 UNK, UNK
     Route: 062
     Dates: start: 20170315
  2. BUTRANS [Suspect]
     Active Substance: BUPRENORPHINE
     Dosage: 5 UNK, UNK
     Route: 062
     Dates: start: 20170301, end: 20170315
  3. BUTRANS [Suspect]
     Active Substance: BUPRENORPHINE
     Dosage: 15 MCG/HR, WEEKLY
     Route: 062
     Dates: start: 20170221, end: 20170301
  4. BUTRANS [Suspect]
     Active Substance: BUPRENORPHINE
     Dosage: 20 MCG/HR, WEEKLY
     Route: 062
     Dates: start: 20170208, end: 20170221

REACTIONS (2)
  - Sedation [Unknown]
  - Inadequate analgesia [Unknown]
